FAERS Safety Report 9324426 (Version 7)
Quarter: 2014Q3

REPORT INFORMATION
  Report Type: Spontaneous
  Country: US (occurrence: US)
  Receive Date: 20130603
  Receipt Date: 20140912
  Transmission Date: 20150326
  Serious: Yes (Hospitalization, Other)
  Sender: FDA-Public Use
  Company Number: US-009507513-1305USA015785

PATIENT
  Sex: Female

DRUGS (5)
  1. BONIVA [Suspect]
     Active Substance: IBANDRONATE SODIUM
     Indication: OSTEOPENIA
     Dosage: 150 MG, QM
     Route: 048
     Dates: start: 200705, end: 200903
  2. LORAZEPAM. [Concomitant]
     Active Substance: LORAZEPAM
     Indication: MUSCLE SPASMS
     Dosage: UNK
     Dates: start: 1995
  3. FOSAMAX [Suspect]
     Active Substance: ALENDRONATE SODIUM
     Indication: OSTEOPENIA
     Dosage: 70 MG, QW
     Route: 048
     Dates: start: 2001, end: 200703
  4. ESTROGEN NOS [Concomitant]
     Active Substance: ESTROGENS
     Indication: POSTMENOPAUSE
     Dosage: UNK
     Dates: start: 1994, end: 2010
  5. CHLORPHENIRAMINE [Concomitant]
     Active Substance: CHLORPHENIRAMINE
     Indication: HYPERSENSITIVITY
     Dosage: 12 MG, BID
     Route: 048

REACTIONS (59)
  - Internal fixation of fracture [Unknown]
  - Medical device removal [Unknown]
  - Post procedural haemorrhage [Unknown]
  - Hyperlipidaemia [Unknown]
  - Oesophageal spasm [Unknown]
  - Sinus tachycardia [Unknown]
  - Intramedullary rod insertion [Unknown]
  - Acute myocardial infarction [Unknown]
  - Device breakage [Unknown]
  - Device breakage [Unknown]
  - Intervertebral disc degeneration [Unknown]
  - Drug administration error [Unknown]
  - Cardiomegaly [Unknown]
  - Anaemia postoperative [Unknown]
  - Normochromic normocytic anaemia [Unknown]
  - Foot fracture [Unknown]
  - Pubis fracture [Unknown]
  - Hypothyroidism [Unknown]
  - Rib fracture [Unknown]
  - Gastrooesophageal reflux disease [Unknown]
  - Femur fracture [Unknown]
  - Thoracic outlet surgery [Unknown]
  - Hypertension [Unknown]
  - Intervertebral disc protrusion [Unknown]
  - Pain [Not Recovered/Not Resolved]
  - Thoracic outlet syndrome [Unknown]
  - Intramedullary rod insertion [Unknown]
  - Femur fracture [Recovered/Resolved]
  - Impaired healing [Unknown]
  - Osteoporosis [Unknown]
  - Adverse event [Unknown]
  - Rib fracture [Unknown]
  - Depression [Not Recovered/Not Resolved]
  - Urinary tract infection [Not Recovered/Not Resolved]
  - Chest pain [Unknown]
  - Osteoporosis [Unknown]
  - Carotid artery disease [Unknown]
  - Hysterectomy [Unknown]
  - Medical device removal [Unknown]
  - Colectomy [Unknown]
  - Loss of consciousness [Unknown]
  - Arthritis [Unknown]
  - Coronary artery disease [Unknown]
  - Insomnia [Unknown]
  - Calcium deficiency [Unknown]
  - Artery dissection [Unknown]
  - Impaired healing [Unknown]
  - Rib fracture [Unknown]
  - Hypertrophy [Unknown]
  - Myocardial ischaemia [Unknown]
  - Bone graft [Unknown]
  - Medical device removal [Unknown]
  - Post procedural haemorrhage [Unknown]
  - Urinary incontinence [Unknown]
  - Anxiety [Not Recovered/Not Resolved]
  - Bundle branch block right [Unknown]
  - Procedural haemorrhage [Unknown]
  - Feeling abnormal [Unknown]
  - Coronary arterial stent insertion [Unknown]

NARRATIVE: CASE EVENT DATE: 2001
